FAERS Safety Report 6676688-1 (Version None)
Quarter: 2010Q2

REPORT INFORMATION
  Report Type: 
  Country: None (occurrence: None)
  Receive Date: 20100408
  Receipt Date: 20100324
  Transmission Date: 20101027
  Serious: Yes (Other)
  Sender: FDA-Public Use
  Company Number: 1022556-2010-00021

PATIENT
  Age: 65 Year
  Sex: Male
  Weight: 100.6985 kg

DRUGS (2)
  1. GOLD BOND MEDICATED POWDER [Suspect]
     Indication: PROPHYLAXIS
     Dosage: 1X, TOPICAL
     Route: 061
     Dates: start: 20100316
  2. GOLD BOND MEDICATED POWDER [Suspect]
     Indication: PRURITUS
     Dosage: 1X, TOPICAL
     Route: 061
     Dates: start: 20100316

REACTIONS (6)
  - ACCIDENTAL EXPOSURE [None]
  - BRONCHITIS [None]
  - CHEST DISCOMFORT [None]
  - DECREASED APPETITE [None]
  - MALAISE [None]
  - WEIGHT DECREASED [None]
